FAERS Safety Report 10566812 (Version 1)
Quarter: 2014Q4

REPORT INFORMATION
  Report Type: Spontaneous
  Country: AT (occurrence: AT)
  Receive Date: 20141105
  Receipt Date: 20141105
  Transmission Date: 20150529
  Serious: Yes (Other)
  Sender: FDA-Public Use
  Company Number: PHHY2014AT142121

PATIENT
  Age: 66 Year
  Sex: Male

DRUGS (2)
  1. NILOTINIB [Suspect]
     Active Substance: NILOTINIB
     Indication: CHRONIC MYELOID LEUKAEMIA
     Route: 065
     Dates: start: 201107, end: 201111
  2. NILOTINIB [Suspect]
     Active Substance: NILOTINIB
     Dates: start: 201204

REACTIONS (1)
  - Polyserositis [Unknown]

NARRATIVE: CASE EVENT DATE: 2011
